FAERS Safety Report 19134781 (Version 1)
Quarter: 2021Q2

REPORT INFORMATION
  Report Type: Spontaneous
  Country: US (occurrence: US)
  Receive Date: 20210414
  Receipt Date: 20210414
  Transmission Date: 20210717
  Serious: No
  Sender: FDA-Public Use
  Company Number: US-SA-2021SA114125

PATIENT
  Age: 69 Year
  Sex: Female

DRUGS (2)
  1. METFORMIN [Concomitant]
     Active Substance: METFORMIN HYDROCHLORIDE
  2. LANTUS [Suspect]
     Active Substance: INSULIN GLARGINE
     Dosage: 20 IU, QD
     Dates: start: 202103

REACTIONS (4)
  - Somnolence [Unknown]
  - Therapeutic response decreased [Unknown]
  - Blood glucose fluctuation [Unknown]
  - Fatigue [Unknown]

NARRATIVE: CASE EVENT DATE: 202103
